FAERS Safety Report 4448664-0 (Version None)
Quarter: 2004Q3

REPORT INFORMATION
  Report Type: 
  Country: None (occurrence: None)
  Receive Date: 20040909
  Receipt Date: 20040819
  Transmission Date: 20050211
  Serious: Yes (Hospitalization)
  Sender: FDA-Public Use
  Company Number: A01200404094

PATIENT
  Age: 43 Year
  Sex: Male

DRUGS (6)
  1. (CLOPIDOGREL) TABLET 75 MG [Suspect]
     Indication: ANGINA UNSTABLE
     Dosage: 75 MG QD ORAL
     Route: 048
  2. DALTEPARIN SODIUM [Suspect]
     Indication: ANGINA UNSTABLE
  3. METOPROLOL [Concomitant]
  4. ACETYLSALICYLIC ACID [Concomitant]
  5. MOLSIDOMINE [Concomitant]
  6. GLYCERYL TRINITRATE SPRAY (GLYCERYL TRINITRATE) [Concomitant]

REACTIONS (4)
  - ANGINA PECTORIS [None]
  - HAEMOLYTIC URAEMIC SYNDROME [None]
  - MYOCARDIAL INFARCTION [None]
  - WHITE BLOOD CELL COUNT INCREASED [None]
